FAERS Safety Report 7335210-7 (Version None)
Quarter: 2011Q1

REPORT INFORMATION
  Report Type: 
  Country: None (occurrence: None)
  Receive Date: 20110307
  Receipt Date: 20110301
  Transmission Date: 20110831
  Serious: No
  Sender: FDA-Public Use
  Company Number: US-PFIZER INC-2011045807

PATIENT
  Sex: Male

DRUGS (3)
  1. CIALIS [Concomitant]
     Dosage: UNK
  2. PRISTIQ [Suspect]
     Dosage: UNK
     Dates: start: 20100101
  3. VIAGRA [Concomitant]
     Dosage: UNK

REACTIONS (3)
  - DRUG INEFFECTIVE [None]
  - HEADACHE [None]
  - MUSCULOSKELETAL STIFFNESS [None]
